FAERS Safety Report 6043829-9 (Version None)
Quarter: 2009Q1

REPORT INFORMATION
  Report Type: 
  Country: None (occurrence: None)
  Receive Date: 20090120
  Receipt Date: 20090108
  Transmission Date: 20090719
  Serious: Yes (Hospitalization)
  Sender: FDA-Public Use
  Company Number: PT-AMGEN-US328429

PATIENT
  Sex: Female
  Weight: 55 kg

DRUGS (6)
  1. ENBREL [Suspect]
     Indication: RHEUMATOID ARTHRITIS
     Route: 058
     Dates: start: 20070627, end: 20081105
  2. PREDNISOLONE [Suspect]
     Indication: RHEUMATOID ARTHRITIS
     Dosage: 2.5 MG
     Route: 048
     Dates: start: 20050414, end: 20081203
  3. METHOTREXATE [Concomitant]
     Dosage: UNKNOWN
     Route: 048
     Dates: start: 20050414, end: 20080123
  4. ALENDRONIC ACID [Concomitant]
     Indication: OSTEOPOROSIS
     Dosage: UNKNOWN
     Route: 048
     Dates: start: 20050414
  5. PANTOPRAZOLE SODIUM [Concomitant]
     Indication: GASTRIC ULCER
     Dosage: UNKNOWN
     Route: 048
  6. CETIRIZINE HYDROCHLORIDE [Concomitant]
     Indication: ERYTHEMA MULTIFORME
     Dosage: 10 MG
     Route: 048
     Dates: start: 20081119, end: 20081128

REACTIONS (1)
  - SPONDYLOLISTHESIS [None]
